FAERS Safety Report 25098987 (Version 1)
Quarter: 2025Q1

REPORT INFORMATION
  Report Type: Spontaneous
  Country: US (occurrence: US)
  Receive Date: 20250320
  Receipt Date: 20250320
  Transmission Date: 20250409
  Serious: Yes (Hospitalization)
  Sender: ALVOGEN
  Company Number: US-BMS-IMIDS-REMS_SI-12337382

PATIENT
  Sex: Male

DRUGS (1)
  1. LENALIDOMIDE [Suspect]
     Active Substance: LENALIDOMIDE
     Indication: Product used for unknown indication

REACTIONS (3)
  - Femur fracture [Unknown]
  - Product dose omission issue [Unknown]
  - Off label use [Unknown]
